FAERS Safety Report 10615976 (Version 2)
Quarter: 2015Q1

REPORT INFORMATION
  Report Type: Report from Study
  Country: JP (occurrence: JP)
  Receive Date: 20141201
  Receipt Date: 20150128
  Transmission Date: 20150720
  Serious: Yes (Life-Threatening)
  Sender: FDA-Public Use
  Company Number: JP-SA-2014SA164392

PATIENT
  Sex: Male
  Weight: 54.8 kg

DRUGS (15)
  1. HOKUNALIN [Concomitant]
     Active Substance: TULOBUTEROL
     Dosage: TAPE 2 MG
  2. LIVALO [Concomitant]
     Active Substance: PITAVASTATIN CALCIUM
     Route: 048
     Dates: end: 20130917
  3. ISALON [Concomitant]
     Active Substance: UNSPECIFIED INGREDIENT
     Indication: PROPHYLAXIS
     Route: 048
     Dates: end: 20130917
  4. PLAVIX [Suspect]
     Active Substance: CLOPIDOGREL BISULFATE
     Indication: PERIPHERAL ARTERIAL OCCLUSIVE DISEASE
     Route: 048
     Dates: start: 20130919, end: 20140122
  5. ZALTOPROFEN [Concomitant]
     Active Substance: ZALTOPROFEN
     Route: 048
     Dates: end: 20130917
  6. OPALMON [Concomitant]
     Active Substance: LIMAPROST
     Route: 048
     Dates: start: 20130905, end: 20130917
  7. MUCOSOLVAN [Concomitant]
     Active Substance: AMBROXOL\CLENBUTEROL
     Route: 048
     Dates: start: 20130919
  8. HEPARIN [Concomitant]
     Active Substance: HEPARIN SODIUM
     Dosage: 12000 TO 17000 UNITS/DAY
     Route: 042
     Dates: start: 20130910, end: 20130920
  9. PREDONINE [Concomitant]
     Active Substance: PREDNISOLONE\PREDNISOLONE ACETATE\PREDNISOLONE SODIUM SUCCINATE
     Dosage: STRENGTH: 5MG
     Route: 048
  10. FEBURIC [Concomitant]
     Active Substance: FEBUXOSTAT
     Dosage: STRENGTH: 10 MG
     Route: 048
  11. TAKEPRON [Concomitant]
     Active Substance: LANSOPRAZOLE
     Indication: PROPHYLAXIS
     Route: 048
     Dates: end: 20130917
  12. PLETAL [Concomitant]
     Active Substance: CILOSTAZOL
     Route: 048
     Dates: start: 20130919, end: 20130926
  13. NEXIUM [Concomitant]
     Active Substance: ESOMEPRAZOLE MAGNESIUM
     Indication: PROPHYLAXIS
     Route: 048
     Dates: start: 20130919
  14. ANPLAG [Concomitant]
     Active Substance: SARPOGRELATE
     Route: 048
     Dates: start: 20130905, end: 20130917
  15. SPIRIVA [Concomitant]
     Active Substance: TIOTROPIUM BROMIDE MONOHYDRATE
     Route: 048

REACTIONS (1)
  - Atrial fibrillation [Recovering/Resolving]
